FAERS Safety Report 15784832 (Version 1)
Quarter: 2019Q1

REPORT INFORMATION
  Report Type: Spontaneous
  Country: GB (occurrence: GB)
  Receive Date: 20190103
  Receipt Date: 20190103
  Transmission Date: 20190417
  Serious: Yes (Other)
  Sender: FDA-Public Use
  Company Number: GB-TEVA-2018-GB-993513

PATIENT
  Age: 7 Decade
  Sex: Female

DRUGS (2)
  1. TRABECTEDIN [Suspect]
     Active Substance: TRABECTEDIN
     Indication: LEIOMYOSARCOMA
     Route: 065
  2. DOXORUBICIN [Suspect]
     Active Substance: DOXORUBICIN
     Indication: LEIOMYOSARCOMA
     Dosage: ADMINISTERED FOR 6 CYCLES
     Route: 065

REACTIONS (4)
  - Hepatic enzyme increased [Unknown]
  - Asthenia [Unknown]
  - Thrombocytopenia [Unknown]
  - Neutropenia [Recovered/Resolved]
